FAERS Safety Report 8465405-0 (Version None)
Quarter: 2012Q2

REPORT INFORMATION
  Report Type: 
  Country: None (occurrence: None)
  Receive Date: 20120626
  Receipt Date: 20120619
  Transmission Date: 20120825
  Serious: Yes (Hospitalization)
  Sender: FDA-Public Use
  Company Number: FR-PFIZER INC-2012131949

PATIENT
  Age: 16 Year
  Sex: Male

DRUGS (4)
  1. ZITHROMAX [Suspect]
     Dosage: 250 MG, 1X/DAY, FROM D-2 TO THE END OF TREATMENT
     Route: 048
     Dates: start: 20120329, end: 20120409
  2. ROCEPHIN [Concomitant]
     Indication: LUNG DISORDER
     Dosage: 2 G
     Dates: start: 20120328, end: 20120330
  3. ZITHROMAX [Suspect]
     Indication: LUNG DISORDER
     Dosage: 500 MG, 1X/DAY, D-1
     Route: 048
     Dates: start: 20120328, end: 20120328
  4. PIPERACILLIN AND TAZOBACTAM [Suspect]
     Indication: LUNG DISORDER
     Dosage: 4 G, 3X/DAY
     Route: 042
     Dates: start: 20120401, end: 20120409

REACTIONS (1)
  - CYTOLYTIC HEPATITIS [None]
